FAERS Safety Report 15819667 (Version 1)
Quarter: 2019Q1

REPORT INFORMATION
  Report Type: Spontaneous
  Country: IT (occurrence: IT)
  Receive Date: 20190114
  Receipt Date: 20190114
  Transmission Date: 20190417
  Serious: Yes (Other)
  Sender: FDA-Public Use
  Company Number: IT-ASTRAZENECA-2019SE03009

PATIENT
  Age: 64 Year
  Sex: Female

DRUGS (9)
  1. CLEXANE [Concomitant]
     Active Substance: ENOXAPARIN SODIUM
  2. AMLODIPINE [Concomitant]
     Active Substance: AMLODIPINE BESYLATE
  3. QUETIAPINE. [Suspect]
     Active Substance: QUETIAPINE
  4. PANTORC [Concomitant]
     Active Substance: PANTOPRAZOLE SODIUM
  5. RIVOTRIL [Suspect]
     Active Substance: CLONAZEPAM
  6. VICTOZA [Concomitant]
     Active Substance: LIRAGLUTIDE
  7. TAVOR (LORAZEPAM) [Suspect]
     Active Substance: LORAZEPAM
  8. RAMIPRIL. [Concomitant]
     Active Substance: RAMIPRIL
  9. TOLEP [Concomitant]
     Active Substance: OXCARBAZEPINE

REACTIONS (3)
  - Hyponatraemic syndrome [Not Recovered/Not Resolved]
  - Fall [Not Recovered/Not Resolved]
  - Injury [Not Recovered/Not Resolved]

NARRATIVE: CASE EVENT DATE: 20181110
